FAERS Safety Report 8825219 (Version 3)
Quarter: 2013Q2

REPORT INFORMATION
  Report Type: Spontaneous
  Country: US (occurrence: US)
  Receive Date: 20121004
  Receipt Date: 20130425
  Transmission Date: 20140414
  Serious: Yes (Other)
  Sender: FDA-Public Use
  Company Number: US-UCBSA-068029

PATIENT
  Sex: Female
  Weight: 68 kg

DRUGS (5)
  1. VIMPAT [Suspect]
     Indication: CONVULSION
     Dosage: 100 MG
     Dates: start: 2011
  2. VIMPAT [Suspect]
     Indication: CONVULSION
     Dates: end: 2011
  3. KEPPRA XR [Suspect]
     Indication: CONVULSION
     Dosage: 500MG
  4. KEPPRA XR [Suspect]
     Indication: CONVULSION
     Dosage: 500 MG
  5. KEPPRA XR [Suspect]
     Indication: CONVULSION

REACTIONS (3)
  - Road traffic accident [Unknown]
  - Convulsion [Unknown]
  - Inappropriate schedule of drug administration [Unknown]
